FAERS Safety Report 11502052 (Version 2)
Quarter: 2015Q3

REPORT INFORMATION
  Report Type: Spontaneous
  Country: US (occurrence: US)
  Receive Date: 20150914
  Receipt Date: 20150915
  Transmission Date: 20151125
  Serious: No
  Sender: FDA-Public Use
  Company Number: US-ELI_LILLY_AND_COMPANY-US201508005724

PATIENT
  Sex: Female

DRUGS (1)
  1. ADCIRCA [Suspect]
     Active Substance: TADALAFIL
     Indication: PULMONARY ARTERIAL HYPERTENSION
     Dosage: 40 MG, QD
     Route: 048

REACTIONS (8)
  - Back pain [Unknown]
  - Headache [Unknown]
  - Dyspepsia [Unknown]
  - Myalgia [Unknown]
  - Palpitations [Unknown]
  - Insomnia [Unknown]
  - Dyspnoea [Unknown]
  - Nasal congestion [Unknown]
